FAERS Safety Report 10456994 (Version 3)
Quarter: 2014Q3

REPORT INFORMATION
  Report Type: Report from Study
  Country: US (occurrence: US)
  Receive Date: 20140916
  Receipt Date: 20140923
  Transmission Date: 20150326
  Serious: Yes (Hospitalization)
  Sender: FDA-Public Use
  Company Number: PHHY2010US40534

PATIENT
  Sex: Male
  Weight: 20.1 kg

DRUGS (2)
  1. PENICILLIN [Concomitant]
     Active Substance: PENICILLIN
     Indication: PROPHYLAXIS
     Dosage: 250 MG, BID
     Route: 048
     Dates: start: 20090202, end: 20090203
  2. ICL670A [Suspect]
     Active Substance: DEFERASIROX
     Dosage: 375 MG, DAILY
     Route: 048
     Dates: start: 20080825, end: 20100223

REACTIONS (2)
  - Splenomegaly [Unknown]
  - Cholelithiasis [Unknown]
